FAERS Safety Report 4764260-X (Version None)
Quarter: 2005Q3

REPORT INFORMATION
  Report Type: 
  Country: None (occurrence: None)
  Receive Date: 20050907
  Receipt Date: 20050907
  Transmission Date: 20060218
  Serious: No
  Sender: FDA-Public Use
  Company Number: None

PATIENT
  Age: 70 Year
  Sex: Male
  Weight: 85.503 kg

DRUGS (13)
  1. CRESTOR [Suspect]
     Indication: DYSLIPIDAEMIA
     Dosage: 20MG-1/2 TABLET- DAILY PO
     Route: 048
     Dates: start: 20041230, end: 20050721
  2. NITROGLYCERIN [Concomitant]
  3. OMEPRAZOLE [Concomitant]
  4. METFORMIN [Concomitant]
  5. OMEGA 3 POLYUSATURATED FATTY ACID [Concomitant]
  6. LEVOTHYROXINE [Concomitant]
  7. ISOSORBIDE DINITRATE [Concomitant]
  8. FUROSEMIDE [Concomitant]
  9. DIGOXIN [Concomitant]
  10. CARVEDILOL [Concomitant]
  11. AMIODARONE [Concomitant]
  12. NIASPAN [Concomitant]
  13. WARFARIN [Concomitant]

REACTIONS (2)
  - BLOOD CREATININE INCREASED [None]
  - PROTEIN URINE [None]
